FAERS Safety Report 11633792 (Version 1)
Quarter: 2015Q4

REPORT INFORMATION
  Report Type: Report from Study
  Country: BE (occurrence: BE)
  Receive Date: 20151015
  Receipt Date: 20151015
  Transmission Date: 20160304
  Serious: Yes (Hospitalization)
  Sender: FDA-Public Use
  Company Number: BE-ASTRAZENECA-2015SE97772

PATIENT
  Age: 54 Year
  Sex: Male

DRUGS (3)
  1. TICAGRELOR [Suspect]
     Active Substance: TICAGRELOR
     Indication: ACUTE CORONARY SYNDROME
     Route: 048
     Dates: start: 20131211
  2. ASPIRIN. [Suspect]
     Active Substance: ASPIRIN
     Indication: ACUTE CORONARY SYNDROME
     Dosage: TOTAL DAILY DOSE: 80 MG (NON-AZ PRODUCT)
     Route: 048
     Dates: start: 201412, end: 201501
  3. ASPIRIN. [Suspect]
     Active Substance: ASPIRIN
     Indication: ACUTE CORONARY SYNDROME
     Dosage: TOTAL DAILY DOSE: 80 MG (NON-AZ PRODUCT)
     Route: 048
     Dates: end: 20150520

REACTIONS (2)
  - Haemorrhoidal haemorrhage [Recovered/Resolved]
  - Angina pectoris [Recovered/Resolved]

NARRATIVE: CASE EVENT DATE: 20150407
